FAERS Safety Report 18242859 (Version 2)
Quarter: 2020Q4

REPORT INFORMATION
  Report Type: Report from Study
  Country: US (occurrence: US)
  Receive Date: 20200908
  Receipt Date: 20201006
  Transmission Date: 20210113
  Serious: Yes (Other)
  Sender: FDA-Public Use
  Company Number: US-GLAXOSMITHKLINE-US2020AMR163479

PATIENT
  Sex: Female

DRUGS (1)
  1. NIRAPARIB [Suspect]
     Active Substance: NIRAPARIB
     Indication: OVARIAN CANCER
     Dosage: 300 MG, QD
     Route: 065
     Dates: start: 20200806, end: 20200826

REACTIONS (17)
  - Neuropathy peripheral [Unknown]
  - Decreased appetite [Not Recovered/Not Resolved]
  - Insomnia [Not Recovered/Not Resolved]
  - Blood pressure increased [Unknown]
  - Therapeutic response unexpected [Unknown]
  - Contusion [Recovering/Resolving]
  - Oral blood blister [Not Recovered/Not Resolved]
  - Petechiae [Unknown]
  - Platelet count decreased [Not Recovered/Not Resolved]
  - Dyspnoea [Unknown]
  - Pain in extremity [Unknown]
  - Constipation [Recovering/Resolving]
  - Condition aggravated [Not Recovered/Not Resolved]
  - Dizziness exertional [Unknown]
  - Pain [Recovering/Resolving]
  - Oedema peripheral [Unknown]
  - Purpura [Unknown]
